FAERS Safety Report 9179786 (Version 1)
Quarter: 2013Q1

REPORT INFORMATION
  Report Type: Spontaneous
  Country: DE (occurrence: DE)
  Receive Date: 20130321
  Receipt Date: 20130321
  Transmission Date: 20140127
  Serious: Yes (Other)
  Sender: FDA-Public Use
  Company Number: GXKR2013DE001185

PATIENT
  Sex: Male

DRUGS (2)
  1. LIDOJECT [Suspect]
  2. TRIAMHEXAL [Suspect]
     Dosage: 10 MG, UNK

REACTIONS (5)
  - Respiratory depression [Unknown]
  - Cardiovascular insufficiency [Unknown]
  - Nausea [Unknown]
  - Speech disorder [Unknown]
  - Dizziness [Unknown]
